FAERS Safety Report 4988118-6 (Version None)
Quarter: 2006Q2

REPORT INFORMATION
  Report Type: 
  Country: None (occurrence: None)
  Receive Date: 20060425
  Receipt Date: 20060413
  Transmission Date: 20061013
  Serious: Yes (Other)
  Sender: FDA-Public Use
  Company Number: GXKR2006CH02124

PATIENT
  Age: 67 Year
  Sex: Male

DRUGS (1)
  1. CAPTOPRIL/HCT (NGX) (CAPTOPRIL, HYDROCHLOROTHIAZIDE)  UNKNOWN, 25/50MG [Suspect]
     Indication: HYPERTENSION
     Dosage: 1.5 DF/D, ORAL
     Route: 048
     Dates: start: 20060328, end: 20060328

REACTIONS (4)
  - ANXIETY [None]
  - PRURITUS [None]
  - RASH PAPULAR [None]
  - URTICARIA [None]
